FAERS Safety Report 7929803-3 (Version None)
Quarter: 2011Q4

REPORT INFORMATION
  Report Type: 
  Country: None (occurrence: None)
  Receive Date: 20111121
  Receipt Date: 20111114
  Transmission Date: 20120403
  Serious: Yes (Other)
  Sender: FDA-Public Use
  Company Number: US-BRISTOL-MYERS SQUIBB COMPANY-16229890

PATIENT
  Age: 46 Year
  Sex: Female

DRUGS (4)
  1. TRIPTORELIN [Concomitant]
     Dosage: PAMOATE. POWDER FOR SUSPENSION FOR INJ.
     Route: 030
     Dates: start: 20100701
  2. HERCEPTIN [Suspect]
     Dates: start: 20100701
  3. CARBOPLATIN [Suspect]
     Dates: start: 20100701
  4. TAXOTERE [Suspect]
     Dates: start: 20100701

REACTIONS (2)
  - RETINAL DETACHMENT [None]
  - BLINDNESS UNILATERAL [None]
